FAERS Safety Report 7530304-5 (Version None)
Quarter: 2011Q2

REPORT INFORMATION
  Report Type: 
  Country: None (occurrence: None)
  Receive Date: 20110531
  Receipt Date: 20110520
  Transmission Date: 20111010
  Serious: Yes (Hospitalization, Other)
  Sender: FDA-Public Use
  Company Number: GB-ACCORD-008824

PATIENT
  Age: 48 Year
  Sex: Male

DRUGS (7)
  1. PREDNISOLONE (IPREDNISOLONE) [Suspect]
     Indication: IMMUNOSUPPRESSION
     Dosage: 0.10 MG/KG - 1.0 TIMES PER 1.0 DAYS
  2. RAMIPRIL [Concomitant]
  3. METHYLPREDNISOLONE [Suspect]
     Indication: IMMUNOSUPPRESSION
  4. NEBIVOLOL HCL [Concomitant]
  5. MYCOPHENOLATE MOFETIL [Suspect]
     Indication: IMMUNOSUPPRESSION
     Dosage: 2.25 G-1.00 TIMES PER 1.0 DAYS
  6. AMLODIPINE [Concomitant]
  7. CICLOSPORINH (CICLOSPORIN) [Suspect]
     Indication: IMMUNOSUPPRESSION

REACTIONS (4)
  - BLOOD PRESSURE INCREASED [None]
  - AORTIC DISSECTION [None]
  - DRUG RESISTANCE [None]
  - CYTOMEGALOVIRUS INFECTION [None]
